FAERS Safety Report 9091222 (Version 1)
Quarter: 2013Q1

REPORT INFORMATION
  Report Type: Report from Study
  Country: US (occurrence: US)
  Receive Date: 20130218
  Receipt Date: 20130218
  Transmission Date: 20140127
  Serious: No
  Sender: FDA-Public Use
  Company Number: US-ABBOTT-12P-163-0961409-00

PATIENT
  Sex: Female
  Weight: 59.02 kg

DRUGS (3)
  1. SIMCOR 500MG/20MG [Suspect]
     Indication: PRODUCT USED FOR UNKNOWN INDICATION
     Dosage: 500/20MG 1 AT BEDTIME
     Route: 048
  2. ZOLOFT [Concomitant]
     Indication: PRODUCT USED FOR UNKNOWN INDICATION
     Route: 048
  3. ASPIRIN [Concomitant]
     Indication: PRODUCT USED FOR UNKNOWN INDICATION
     Dosage: 30 MINUTES PRIOR TO DOSE OF SIMCOR WHEN SHE BEGAN TAKING SIMCOR

REACTIONS (3)
  - Contusion [Not Recovered/Not Resolved]
  - Coagulation time prolonged [Recovered/Resolved]
  - Flushing [Recovered/Resolved]
